FAERS Safety Report 4692537-5 (Version None)
Quarter: 2005Q2

REPORT INFORMATION
  Report Type: 
  Country: None (occurrence: None)
  Receive Date: 20050617
  Receipt Date: 20050404
  Transmission Date: 20051028
  Serious: Yes (Life-Threatening, Hospitalization)
  Sender: FDA-Public Use
  Company Number: 2005AC00536

PATIENT
  Age: 22363 Day
  Sex: Male

DRUGS (9)
  1. QUETIAPINE FUMARATE [Interacting]
     Indication: IRRITABILITY
     Route: 048
     Dates: start: 20020901, end: 20021122
  2. QUETIAPINE FUMARATE [Interacting]
     Indication: AGITATION
     Route: 048
     Dates: start: 20020901, end: 20021122
  3. QUETIAPINE FUMARATE [Interacting]
     Indication: EXTRAPYRAMIDAL DISORDER
     Route: 048
     Dates: start: 20020901, end: 20021122
  4. DEPROMEL [Interacting]
     Indication: DEPRESSED MOOD
     Route: 048
     Dates: start: 20021101, end: 20021114
  5. DEPROMEL [Interacting]
     Indication: AFFECTIVE DISORDER
     Route: 048
     Dates: start: 20021101, end: 20021114
  6. DEPROMEL [Interacting]
     Route: 048
     Dates: start: 20021115, end: 20021122
  7. DEPROMEL [Interacting]
     Route: 048
     Dates: start: 20021115, end: 20021122
  8. SEDIEL [Suspect]
     Dates: end: 20021122
  9. SYMMETREL [Suspect]
     Dates: end: 20021122

REACTIONS (10)
  - AGITATION [None]
  - ASPIRATION [None]
  - DEPRESSED MOOD [None]
  - DRUG INTERACTION [None]
  - EXTRAPYRAMIDAL DISORDER [None]
  - IRRITABILITY [None]
  - JAUNDICE [None]
  - NEUROLEPTIC MALIGNANT SYNDROME [None]
  - PNEUMONIA [None]
  - RESPIRATORY FAILURE [None]
